FAERS Safety Report 25888883 (Version 1)
Quarter: 2025Q4

REPORT INFORMATION
  Report Type: Report from Study
  Country: US (occurrence: US)
  Receive Date: 20251007
  Receipt Date: 20251007
  Transmission Date: 20260118
  Serious: Yes (Other)
  Sender: ACADIA PHARMACEUTICALS
  Company Number: US-ACADIA PHARMACEUTICALS INC.-ACA-2025-PIM-010862

PATIENT
  Age: 68 Year
  Sex: Female

DRUGS (8)
  1. NUPLAZID [Suspect]
     Active Substance: PIMAVANSERIN TARTRATE
     Indication: Parkinson^s disease
     Dosage: 34 MILLIGRAM, QD
     Route: 048
     Dates: start: 20241004
  2. PROGESTERONE [Concomitant]
     Active Substance: PROGESTERONE
     Dosage: MICRO
  3. PHENAZOPYRIDINE [Concomitant]
     Active Substance: PHENAZOPYRIDINE
  4. GEMTESA [Concomitant]
     Active Substance: VIBEGRON
  5. GABAPENTIN [Concomitant]
     Active Substance: GABAPENTIN
  6. QUETIAPINE [Concomitant]
     Active Substance: QUETIAPINE
  7. ESTRADIOL [Concomitant]
     Active Substance: ESTRADIOL
     Dosage: VAGINAL CREAM
  8. TRAZODONE [Concomitant]
     Active Substance: TRAZODONE HYDROCHLORIDE

REACTIONS (2)
  - Hallucination [Not Recovered/Not Resolved]
  - Product dose omission issue [Not Recovered/Not Resolved]

NARRATIVE: CASE EVENT DATE: 20250928
